FAERS Safety Report 6402837-6 (Version None)
Quarter: 2009Q4

REPORT INFORMATION
  Report Type: 
  Country: None (occurrence: None)
  Receive Date: 20091016
  Receipt Date: 20091006
  Transmission Date: 20100525
  Serious: Yes (Hospitalization, Other)
  Sender: FDA-Public Use
  Company Number: US-BIOGENIDEC-2005BI006046

PATIENT
  Age: 59 Year
  Sex: Female
  Weight: 58 kg

DRUGS (3)
  1. AVONEX [Suspect]
     Indication: MULTIPLE SCLEROSIS
     Route: 030
     Dates: start: 20020311, end: 20030801
  2. AVONEX [Suspect]
     Route: 030
     Dates: start: 20030801, end: 20030101
  3. AVONEX [Suspect]
     Route: 030
     Dates: start: 20030101, end: 20070825

REACTIONS (7)
  - ANXIETY [None]
  - BASAL CELL CARCINOMA [None]
  - BREAST CANCER [None]
  - BREAST CANCER METASTATIC [None]
  - CHEST WALL MASS [None]
  - MULTIPLE SCLEROSIS RELAPSE [None]
  - SEBORRHOEIC KERATOSIS [None]
